FAERS Safety Report 15694330 (Version 1)
Quarter: 2018Q4

REPORT INFORMATION
  Report Type: Report from Study
  Country: US (occurrence: US)
  Receive Date: 20181206
  Receipt Date: 20181206
  Transmission Date: 20190205
  Serious: Yes (Death, Other)
  Sender: FDA-Public Use
  Company Number: US-009507513-1812USA000207

PATIENT
  Sex: Female

DRUGS (2)
  1. KEYTRUDA [Suspect]
     Active Substance: PEMBROLIZUMAB
  2. NOXAFIL [Suspect]
     Active Substance: POSACONAZOLE
     Dosage: SUSTAINED ACTION
     Route: 048

REACTIONS (1)
  - Death [Fatal]
